FAERS Safety Report 10395077 (Version 1)
Quarter: 2014Q1

REPORT INFORMATION
  Report Type: Spontaneous
  Country: US (occurrence: None)
  Receive Date: 20130524
  Receipt Date: 20130524
  Transmission Date: 20141002
  Serious: No
  Sender: FDA-Public Use
  Company Number: PHEH2011US06555

PATIENT
  Age: 23 Year
  Sex: Female
  Weight: 60.78 kg

DRUGS (4)
  1. GILENYA (FINGOLIMOD) CAPSULE, 0.5MG [Suspect]
     Indication: MULTIPLE SCLEROSIS
     Route: 048
     Dates: start: 20110816
  2. VITAMIN D (ERGOCALCIFEROL) [Concomitant]
  3. ZOMIG (ZOLMITRIPTAN) [Concomitant]
  4. KEPPRA (LEVETIRACETAM) [Concomitant]

REACTIONS (4)
  - Weight increased [None]
  - Appetite disorder [None]
  - Headache [None]
  - Dyspnoea [None]
